FAERS Safety Report 5318564-2 (Version None)
Quarter: 2007Q2

REPORT INFORMATION
  Report Type: 
  Country: None (occurrence: None)
  Receive Date: 20070508
  Receipt Date: 20070427
  Transmission Date: 20071010
  Serious: Yes (Other)
  Sender: FDA-Public Use
  Company Number: GB-JNJFOC-20070406471

PATIENT
  Sex: Male
  Weight: 57 kg

DRUGS (5)
  1. REMICADE [Suspect]
     Indication: ANKYLOSING SPONDYLITIS
     Route: 042
  2. INDOCID [Concomitant]
  3. TRAMADOL HCL [Concomitant]
  4. MISOPROSTOL [Concomitant]
  5. CO-PROXAMOL [Concomitant]

REACTIONS (1)
  - BASAL CELL CARCINOMA [None]
